FAERS Safety Report 20421786 (Version 1)
Quarter: 2022Q1

REPORT INFORMATION
  Report Type: Spontaneous
  Country: US (occurrence: US)
  Receive Date: 20220203
  Receipt Date: 20220203
  Transmission Date: 20220423
  Serious: No
  Sender: FDA-Public Use
  Company Number: US-FOUNDATIONCB-2021-US-006024

PATIENT
  Age: 43 Year
  Sex: Male
  Weight: 80.74 kg

DRUGS (5)
  1. ALAVERT ALLERGY [Suspect]
     Active Substance: LORATADINE
     Indication: Hypersensitivity
     Dosage: 10MG DAILY
     Route: 048
     Dates: start: 2001
  2. MODERNA COVID-19 VACCINE [Suspect]
     Active Substance: ELASOMERAN
     Dates: start: 2021, end: 2021
  3. OMEPRAZOLE [Concomitant]
     Active Substance: OMEPRAZOLE
  4. VITAMIN C [Concomitant]
     Active Substance: ASCORBIC ACID
  5. VITAMINS [Concomitant]
     Active Substance: VITAMINS

REACTIONS (4)
  - Pruritus [Unknown]
  - Drug ineffective [Unknown]
  - Expired product administered [Recovered/Resolved]
  - Condition aggravated [Not Recovered/Not Resolved]

NARRATIVE: CASE EVENT DATE: 20210315
